FAERS Safety Report 12577921 (Version 1)
Quarter: 2016Q3

REPORT INFORMATION
  Report Type: Spontaneous
  Country: US (occurrence: None)
  Receive Date: 20160720
  Receipt Date: 20160720
  Transmission Date: 20161109
  Serious: No
  Sender: FDA-Public Use
  Company Number: None

PATIENT
  Sex: Female

DRUGS (2)
  1. METFORMIN [Suspect]
     Active Substance: METFORMIN HYDROCHLORIDE
  2. PREDNISONE. [Suspect]
     Active Substance: PREDNISONE

REACTIONS (4)
  - Blood pressure abnormal [None]
  - Blood glucose decreased [None]
  - Glycosylated haemoglobin increased [None]
  - Contusion [None]
